FAERS Safety Report 8237824-9 (Version None)
Quarter: 2012Q1

REPORT INFORMATION
  Report Type: 
  Country: None (occurrence: None)
  Receive Date: 20120326
  Receipt Date: 20120308
  Transmission Date: 20120608
  Serious: Yes (Other)
  Sender: FDA-Public Use
  Company Number: 201203055

PATIENT
  Age: 56 Year
  Sex: Male

DRUGS (1)
  1. XIAFLEX [Suspect]
     Indication: DUPUYTREN'S CONTRACTURE
     Dosage: 1 IN 1 D, INTRALESIONAL
     Route: 026

REACTIONS (4)
  - OEDEMA PERIPHERAL [None]
  - SKIN GRAFT [None]
  - LACERATION [None]
  - IMPAIRED HEALING [None]
